FAERS Safety Report 7825340-5 (Version None)
Quarter: 2011Q4

REPORT INFORMATION
  Report Type: 
  Country: None (occurrence: None)
  Receive Date: 20111019
  Receipt Date: 20111011
  Transmission Date: 20120403
  Serious: Yes (Other)
  Sender: FDA-Public Use
  Company Number: PHHY2011GB89660

PATIENT
  Age: 70 Year
  Sex: Male

DRUGS (1)
  1. INDOMETHACIN [Suspect]
     Indication: GOUT
     Dosage: UNK
     Dates: end: 20070301

REACTIONS (9)
  - MALAISE [None]
  - INTERSTITIAL LUNG DISEASE [None]
  - PRURITUS [None]
  - OEDEMA PERIPHERAL [None]
  - DYSPNOEA [None]
  - GENERAL PHYSICAL HEALTH DETERIORATION [None]
  - SENSATION OF HEAVINESS [None]
  - WITHDRAWAL SYNDROME [None]
  - GAIT DISTURBANCE [None]
